FAERS Safety Report 4434417-6 (Version None)
Quarter: 2004Q4

REPORT INFORMATION
  Report Type: 
  Country: None (occurrence: None)
  Receive Date: 20040825
  Receipt Date: 20040810
  Transmission Date: 20050328
  Serious: Yes (Death, Other)
  Sender: FDA-Public Use
  Company Number: USA040567362

PATIENT
  Age: 45 Year
  Sex: Female
  Weight: 56 kg

DRUGS (7)
  1. SYMBYAX [Suspect]
     Indication: BIPOLAR DISORDER
     Dates: start: 20040407
  2. DEPAKOTE [Concomitant]
  3. KEPPRA [Concomitant]
  4. KLONOPIN [Concomitant]
  5. IMITREX [Concomitant]
  6. REPLAX (ELETRIPTAN HYDROBROMIDE) [Concomitant]
  7. PAXIL [Concomitant]

REACTIONS (18)
  - ABNORMAL BEHAVIOUR [None]
  - ACCIDENTAL DEATH [None]
  - ALCOHOL POISONING [None]
  - AORTIC ATHEROSCLEROSIS [None]
  - ASPIRATION [None]
  - ATELECTASIS [None]
  - CARDIOMEGALY [None]
  - CHOKING [None]
  - CONVULSION [None]
  - HAEMORRHAGE SUBCUTANEOUS [None]
  - HEPATIC CONGESTION [None]
  - HEPATIC STEATOSIS [None]
  - MENINGEAL DISORDER [None]
  - PULMONARY CONGESTION [None]
  - RIB FRACTURE [None]
  - SELF-MEDICATION [None]
  - TOXICOLOGIC TEST ABNORMAL [None]
  - TREATMENT NONCOMPLIANCE [None]
